FAERS Safety Report 4365478-0 (Version None)
Quarter: 2004Q2

REPORT INFORMATION
  Report Type: 
  Country: None (occurrence: None)
  Receive Date: 20040526
  Receipt Date: 20040428
  Transmission Date: 20050107
  Serious: Yes (Life-Threatening, Hospitalization)
  Sender: FDA-Public Use
  Company Number: FR-BRISTOL-MYERS SQUIBB COMPANY-12574547

PATIENT
  Age: 2 Day
  Sex: Female
  Weight: 1 kg

DRUGS (5)
  1. HYDREA [Suspect]
     Indication: ACUTE MYELOID LEUKAEMIA
     Route: 064
     Dates: start: 20040308, end: 20020309
  2. IDARUBICIN HCL [Concomitant]
     Indication: ACUTE MYELOID LEUKAEMIA
     Route: 064
     Dates: start: 20040308, end: 20040309
  3. TAZOCILLINE [Concomitant]
     Indication: ANTI-INFECTIVE THERAPY
     Route: 064
     Dates: start: 20040308, end: 20040313
  4. GENTALLINE [Concomitant]
     Indication: ANTI-INFECTIVE THERAPY
     Route: 064
     Dates: start: 20040308, end: 20040313
  5. ATARAX [Concomitant]
     Indication: ANTI-INFECTIVE THERAPY
     Dosage: 50-100 MG
     Route: 064
     Dates: start: 20040308, end: 20040311

REACTIONS (6)
  - DERMATITIS BULLOUS [None]
  - NEUTROPENIA [None]
  - OLIGURIA [None]
  - PREMATURE BABY [None]
  - RENAL FAILURE [None]
  - SKIN NECROSIS [None]
